FAERS Safety Report 6788717-5 (Version None)
Quarter: 2010Q2

REPORT INFORMATION
  Report Type: 
  Country: None (occurrence: None)
  Receive Date: 20100621
  Receipt Date: 20100611
  Transmission Date: 20101027
  Serious: Yes (Death, Hospitalization)
  Sender: FDA-Public Use
  Company Number: 2010PL000072

PATIENT
  Age: 82 Year
  Sex: Male

DRUGS (13)
  1. IMURAN [Suspect]
     Indication: IMMUNOSUPPRESSANT DRUG THERAPY
     Dosage: 25 MG;QD
     Dates: start: 20071207, end: 20071213
  2. HEPARIN SODIUM INJECTION [Suspect]
     Indication: DEEP VEIN THROMBOSIS
     Dosage: 5000 UNITS;Q8H;SC
     Route: 058
     Dates: start: 20071204, end: 20071212
  3. PREDNISONE [Concomitant]
  4. LEVOTHYROXINE SODIUM [Concomitant]
  5. FELODIPINE [Concomitant]
  6. POTASSIUM CHLORIDE [Concomitant]
  7. HYDROCHLOROTHIAZIDE [Concomitant]
  8. GLIPIZIDE [Concomitant]
  9. LOPRESSOR [Concomitant]
  10. PEPCID [Concomitant]
  11. PIOGLITAZONE [Concomitant]
  12. LOVASTATIN [Concomitant]
  13. OXYGEN [Concomitant]

REACTIONS (21)
  - ACTIVATED PARTIAL THROMBOPLASTIN TIME PROLONGED [None]
  - ASTHENIA [None]
  - CATHETER SITE HAEMORRHAGE [None]
  - CONTUSION [None]
  - DEEP VEIN THROMBOSIS [None]
  - DIASTOLIC DYSFUNCTION [None]
  - GRIP STRENGTH DECREASED [None]
  - HAEMATOMA [None]
  - HYPERGLYCAEMIA [None]
  - HYPOAESTHESIA [None]
  - LYMPHOEDEMA [None]
  - MOVEMENT DISORDER [None]
  - OEDEMA PERIPHERAL [None]
  - PAIN IN EXTREMITY [None]
  - PLATELET COUNT DECREASED [None]
  - PULMONARY EMBOLISM [None]
  - RENAL FAILURE ACUTE [None]
  - RENAL FAILURE CHRONIC [None]
  - RESPIRATORY FAILURE [None]
  - SENSORY LOSS [None]
  - SKIN LACERATION [None]
